FAERS Safety Report 15561162 (Version 13)
Quarter: 2022Q2

REPORT INFORMATION
  Report Type: Spontaneous
  Country: US (occurrence: US)
  Receive Date: 20181029
  Receipt Date: 20220425
  Transmission Date: 20220721
  Serious: No
  Sender: FDA-Public Use
  Company Number: US-PFIZER INC-2018440428

PATIENT
  Age: 48 Year
  Sex: Female
  Weight: 89 kg

DRUGS (6)
  1. LYRICA [Suspect]
     Active Substance: PREGABALIN
     Indication: Neuropathy peripheral
     Dosage: 100 MG, 4X/DAY
  2. LYRICA [Suspect]
     Active Substance: PREGABALIN
     Indication: Mononeuritis
     Dosage: UNK, 1X/DAY (SPARINGLY)
  3. LYRICA [Suspect]
     Active Substance: PREGABALIN
     Indication: Polyneuropathy
     Dosage: 200 MG, 2X/DAY (100 MG TWO CAPSULES, TWICE A DAY)
     Route: 048
  4. LYRICA [Suspect]
     Active Substance: PREGABALIN
     Indication: Pain
     Dosage: 1 DF, 1X/DAY (TAKING ONLY ONE CAPSULE WHEN SHE WAS PRESCRIBED WITH 2 CAPSULES TWICE A DAY)
  5. LYRICA [Suspect]
     Active Substance: PREGABALIN
     Indication: Restless legs syndrome
  6. LISINOPRIL [Concomitant]
     Active Substance: LISINOPRIL
     Dosage: 30 MG, UNK

REACTIONS (6)
  - Therapeutic product effect incomplete [Unknown]
  - Intentional product use issue [Unknown]
  - Burning sensation [Unknown]
  - Pruritus [Unknown]
  - Paraesthesia [Unknown]
  - Fatigue [Unknown]
